FAERS Safety Report 23346691 (Version 2)
Quarter: 2023Q4

REPORT INFORMATION
  Report Type: Spontaneous
  Country: US (occurrence: US)
  Receive Date: 20231228
  Receipt Date: 20231228
  Transmission Date: 20240109
  Serious: Yes (Hospitalization, Other)
  Sender: FDA-Public Use
  Company Number: US-GILEAD-2023-0656252

PATIENT
  Sex: Male

DRUGS (1)
  1. CAYSTON [Suspect]
     Active Substance: AZTREONAM
     Indication: Chronic obstructive pulmonary disease
     Dosage: UNK
     Route: 055

REACTIONS (6)
  - Pneumonia [Unknown]
  - Bladder disorder [Unknown]
  - Staphylococcal infection [Unknown]
  - Secretion discharge [Unknown]
  - Dyspnoea [Unknown]
  - Off label use [Unknown]
